FAERS Safety Report 4910138-8 (Version None)
Quarter: 2006Q1

REPORT INFORMATION
  Report Type: 
  Country: None (occurrence: None)
  Receive Date: 20060209
  Receipt Date: 20060127
  Transmission Date: 20060701
  Serious: Yes (Death)
  Sender: FDA-Public Use
  Company Number: L05-USA-03935-36

PATIENT
  Age: 46 Year
  Sex: Female

DRUGS (15)
  1. DILTIAZEM [Suspect]
  2. POTASSIUM CHLORIDE [Suspect]
  3. INSULIN [Suspect]
  4. BUPROPION HYDROCHLORIDE [Suspect]
  5. ASPIRIN [Suspect]
  6. ACETAMINOPHEN AND HYDROCODONE BITARTRATE [Suspect]
  7. DIPHENHYDRAMINE [Suspect]
  8. PROPOXYPHENE HYDROCHLORIDE CAP [Suspect]
  9. SIMVASTATIN [Suspect]
  10. ALPRAZOLAM [Suspect]
  11. TEMAZEPAM [Suspect]
  12. DOCUSATE SODIUM [Suspect]
  13. TRIAMTERENE AND HYDROCHLOROTHIAZIDE [Suspect]
  14. CELECOXIB [Suspect]
  15. ESOMEPRAZOLE [Suspect]

REACTIONS (11)
  - ALANINE AMINOTRANSFERASE INCREASED [None]
  - ASPARTATE AMINOTRANSFERASE INCREASED [None]
  - BLOOD GLUCOSE DECREASED [None]
  - BLOOD POTASSIUM DECREASED [None]
  - CARDIAC ARREST [None]
  - COMPLETED SUICIDE [None]
  - CONVULSION [None]
  - HEART RATE INCREASED [None]
  - LOSS OF CONSCIOUSNESS [None]
  - RESPIRATORY ARREST [None]
  - THERAPY NON-RESPONDER [None]
